FAERS Safety Report 10861833 (Version 1)
Quarter: 2015Q1

REPORT INFORMATION
  Report Type: Report from Study
  Country: ZA (occurrence: ZA)
  Receive Date: 20150224
  Receipt Date: 20150224
  Transmission Date: 20150721
  Serious: Yes (Death)
  Sender: FDA-Public Use
  Company Number: ZA-AMGEN-ZAFSL2015015831

PATIENT
  Age: 47 Year
  Sex: Male

DRUGS (2)
  1. ARANESP [Suspect]
     Active Substance: DARBEPOETIN ALFA
     Indication: PRODUCT USED FOR UNKNOWN INDICATION
     Dosage: 40 MUG, QWK
     Route: 065
     Dates: start: 201407
  2. COSMOFER [Concomitant]
     Active Substance: IRON DEXTRAN
     Dosage: 100 MG, QWK

REACTIONS (1)
  - Death [Fatal]
